FAERS Safety Report 6438885-X (Version None)
Quarter: 2009Q4

REPORT INFORMATION
  Report Type: 
  Country: None (occurrence: None)
  Receive Date: 20091113
  Receipt Date: 20091102
  Transmission Date: 20100525
  Serious: Yes (Other)
  Sender: FDA-Public Use
  Company Number: PHEH2007US16352

PATIENT
  Sex: Male
  Weight: 73 kg

DRUGS (3)
  1. EXJADE [Suspect]
     Indication: SICKLE CELL ANAEMIA
     Dosage: 1250 MG, QD
     Route: 048
     Dates: start: 20061001
  2. EXJADE [Suspect]
     Indication: IRON OVERLOAD
  3. HYDREA [Suspect]
     Indication: SICKLE CELL ANAEMIA
     Dosage: 1500/2000 QOD
     Route: 048
     Dates: start: 20080101

REACTIONS (7)
  - DIARRHOEA [None]
  - HAEMATOCRIT DECREASED [None]
  - HAEMOGLOBIN DECREASED [None]
  - MEAN CELL VOLUME INCREASED [None]
  - RASH [None]
  - URTICARIA [None]
  - WHITE BLOOD CELL COUNT DECREASED [None]
